FAERS Safety Report 15540782 (Version 1)
Quarter: 2018Q4

REPORT INFORMATION
  Report Type: Spontaneous
  Country: CN (occurrence: CN)
  Receive Date: 20181023
  Receipt Date: 20181023
  Transmission Date: 20190205
  Serious: Yes (Hospitalization)
  Sender: FDA-Public Use
  Company Number: CN-MYLANLABS-2018M1076471

PATIENT
  Age: 43 Year
  Sex: Female

DRUGS (6)
  1. TENOFOVIR [Suspect]
     Active Substance: TENOFOVIR
     Indication: HIV INFECTION
     Dosage: 300 MG, QD
     Route: 065
     Dates: start: 201106
  2. NEVIRAPINE. [Suspect]
     Active Substance: NEVIRAPINE
     Indication: HIV INFECTION
     Dosage: 200 MG, BID
     Route: 065
     Dates: start: 200507, end: 201106
  3. LAMIVUDINE. [Suspect]
     Active Substance: LAMIVUDINE
     Indication: HIV INFECTION
     Dosage: 150 MG, BID
     Route: 065
     Dates: start: 200507
  4. STAVUDINE. [Suspect]
     Active Substance: STAVUDINE
     Indication: HIV INFECTION
     Dosage: 40 MG, BID
     Route: 065
     Dates: start: 200507, end: 201106
  5. LOPINAVIR [Suspect]
     Active Substance: LOPINAVIR
     Indication: HIV INFECTION
     Dosage: 200 MG, BID
     Route: 065
     Dates: start: 201106
  6. RITONAVIR. [Suspect]
     Active Substance: RITONAVIR
     Indication: HIV INFECTION
     Dosage: 100 MG, BID
     Route: 065
     Dates: start: 201106

REACTIONS (8)
  - Platelet count decreased [Unknown]
  - Portal hypertension [Recovering/Resolving]
  - White blood cell count decreased [Unknown]
  - Ascites [Recovering/Resolving]
  - Splenomegaly [Recovering/Resolving]
  - Haemoglobin decreased [Unknown]
  - Nodular regenerative hyperplasia [Recovering/Resolving]
  - Varices oesophageal [Recovering/Resolving]
